FAERS Safety Report 11422198 (Version 1)
Quarter: 2015Q3

REPORT INFORMATION
  Report Type: Spontaneous
  Country: AT (occurrence: None)
  Receive Date: 20150825
  Receipt Date: 20150825
  Transmission Date: 20151125
  Serious: Yes (Hospitalization)
  Sender: FDA-Public Use
  Company Number: AT-LHC-2015110

PATIENT
  Age: 68 Year
  Sex: Female

DRUGS (2)
  1. CONOXIA, MEDIZINISCHES GAS (OXYGEN) (INHALATION GAS) (OXYGEN) (VERUM) [Suspect]
     Active Substance: OXYGEN
     Indication: CHRONIC OBSTRUCTIVE PULMONARY DISEASE
     Dosage: 2 LITERS/MIN, 16-18 HOURS PER DAY, INHALATION
     Route: 055
     Dates: start: 201407
  2. CONOXIA, MEDIZINISCHES GAS (OXYGEN) (INHALATION GAS) (OXYGEN) (VERUM) [Suspect]
     Active Substance: OXYGEN
     Indication: HYPOXIA
     Dosage: 2 LITERS/MIN, 16-18 HOURS PER DAY, INHALATION
     Route: 055
     Dates: start: 201407

REACTIONS (7)
  - Disease progression [None]
  - Incorrect dose administered [None]
  - Lung infection [None]
  - Chronic obstructive pulmonary disease [None]
  - Acute respiratory failure [None]
  - Respiratory acidosis [None]
  - Hypercapnia [None]

NARRATIVE: CASE EVENT DATE: 20150816
